FAERS Safety Report 5903528-8 (Version None)
Quarter: 2008Q3

REPORT INFORMATION
  Report Type: 
  Country: None (occurrence: None)
  Receive Date: 20080930
  Receipt Date: 20080922
  Transmission Date: 20090109
  Serious: Yes (Other)
  Sender: FDA-Public Use
  Company Number: HQWYE008213DEC06

PATIENT
  Age: 26 Year
  Sex: Female

DRUGS (3)
  1. PREMARIN [Suspect]
     Indication: OVARIAN FAILURE
     Dosage: 1.25MG, FREQUENCY NOT SPECIFIED
  2. PREMARIN [Suspect]
     Dosage: 0.625MG, FREQUENCY NOT SPECIFIED
  3. MEDROXYPROGESTERONE ACETATE [Suspect]
     Indication: PUBERTY
     Dosage: MONTHLY SEVEN DAY COURSE OF 10MG

REACTIONS (1)
  - UTERINE LEIOMYOMA [None]
